FAERS Safety Report 10108618 (Version 1)
Quarter: 2014Q2

REPORT INFORMATION
  Report Type: Spontaneous
  Country: US (occurrence: US)
  Receive Date: 20140425
  Receipt Date: 20140425
  Transmission Date: 20141212
  Serious: Yes (Other)
  Sender: FDA-Public Use
  Company Number: US-AMGEN-USASP2014028804

PATIENT
  Age: 16 Year
  Sex: Female

DRUGS (2)
  1. SENSIPAR [Suspect]
     Indication: HYPERCALCAEMIA
     Route: 065
  2. RITUXIMAB [Concomitant]

REACTIONS (1)
  - Heart valve replacement [Unknown]
